FAERS Safety Report 15465186 (Version 1)
Quarter: 2018Q4

REPORT INFORMATION
  Report Type: Spontaneous
  Country: US (occurrence: US)
  Receive Date: 20181004
  Receipt Date: 20181004
  Transmission Date: 20190204
  Serious: No
  Sender: FDA-Public Use
  Company Number: US-009507513-1809USA012576

PATIENT
  Sex: Male

DRUGS (1)
  1. CLOTRIMAZOLE (+) BETAMETHASONE DIPROPIONATE [Suspect]
     Active Substance: BETAMETHASONE DIPROPIONATE\CLOTRIMAZOLE
     Indication: CANDIDA INFECTION
     Dosage: UNK
     Route: 061

REACTIONS (4)
  - Drug ineffective [Unknown]
  - Expired product administered [Unknown]
  - Product use in unapproved indication [Unknown]
  - Product administered at inappropriate site [Unknown]

NARRATIVE: CASE EVENT DATE: 2013
